FAERS Safety Report 25677003 (Version 3)
Quarter: 2025Q4

REPORT INFORMATION
  Report Type: Spontaneous
  Country: US (occurrence: US)
  Receive Date: 20250813
  Receipt Date: 20251007
  Transmission Date: 20260118
  Serious: No
  Sender: SANOFI AVENTIS
  Company Number: US-SA-2025SA228387

PATIENT
  Age: 55 Year
  Sex: Male
  Weight: 112.5 kg

DRUGS (1)
  1. QFITLIA [Suspect]
     Active Substance: FITUSIRAN
     Indication: Haemophilia
     Dosage: 50 MG, Q2M
     Route: 058
     Dates: start: 20250718

REACTIONS (2)
  - Chest pain [Recovering/Resolving]
  - Abdominal pain lower [Recovering/Resolving]

NARRATIVE: CASE EVENT DATE: 20250731
